FAERS Safety Report 5610656-3 (Version None)
Quarter: 2008Q1

REPORT INFORMATION
  Report Type: 
  Country: None (occurrence: None)
  Receive Date: 20080131
  Receipt Date: 20080131
  Transmission Date: 20080703
  Serious: No
  Sender: FDA-Public Use
  Company Number: None

PATIENT
  Age: 53 Year
  Sex: Female

DRUGS (2)
  1. OXYCODONE AND ACETAMINOPHEN [Suspect]
     Dosage: TABLET
  2. OXYCODONE HYDROCHLORIDE [Suspect]
     Dosage: TABLET

REACTIONS (5)
  - ANXIETY [None]
  - DRUG DISPENSING ERROR [None]
  - EMOTIONAL DISTRESS [None]
  - MEDICATION ERROR [None]
  - WRONG DRUG ADMINISTERED [None]
